FAERS Safety Report 5735171-8 (Version None)
Quarter: 2008Q2

REPORT INFORMATION
  Report Type: 
  Country: None (occurrence: None)
  Receive Date: 20080512
  Receipt Date: 20080502
  Transmission Date: 20081010
  Serious: Yes (Other)
  Sender: FDA-Public Use
  Company Number: US-ELI_LILLY_AND_COMPANY-US200804003520

PATIENT
  Sex: Female

DRUGS (3)
  1. FORTEO [Suspect]
     Dates: start: 20070901
  2. VITAMIN D [Concomitant]
  3. ANTIHYPERTENSIVES [Concomitant]

REACTIONS (1)
  - JOINT DISLOCATION [None]
